FAERS Safety Report 4453918-8 (Version None)
Quarter: 2004Q3

REPORT INFORMATION
  Report Type: 
  Country: None (occurrence: None)
  Receive Date: 20040920
  Receipt Date: 20040907
  Transmission Date: 20050211
  Serious: Yes (Life-Threatening)
  Sender: FDA-Public Use
  Company Number: US-MERCK-0409USA00571

PATIENT
  Age: 78 Year
  Sex: Female

DRUGS (2)
  1. HYDROCHLOROTHIAZIDE [Concomitant]
     Route: 065
  2. COZAAR [Suspect]
     Indication: HYPERTENSION
     Route: 048
     Dates: start: 19980101, end: 20040907

REACTIONS (2)
  - HYPERTENSION [None]
  - LOSS OF CONSCIOUSNESS [None]
